FAERS Safety Report 7880930-9 (Version None)
Quarter: 2011Q4

REPORT INFORMATION
  Report Type: 
  Country: None (occurrence: None)
  Receive Date: 20111101
  Receipt Date: 20111021
  Transmission Date: 20120403
  Serious: Yes (Hospitalization)
  Sender: FDA-Public Use
  Company Number: US-CELGENEUS-163-21880-11102028

PATIENT
  Sex: Male

DRUGS (9)
  1. HUMALOG [Concomitant]
     Route: 058
  2. NEXIUM [Concomitant]
     Route: 065
  3. JANUMET [Concomitant]
     Route: 065
  4. DEXAMETHASONE [Concomitant]
     Route: 065
  5. ADVAIR DISKUS 100/50 [Concomitant]
     Route: 065
  6. CALCITONIN SALMON [Concomitant]
     Route: 065
  7. LANTUS [Concomitant]
     Route: 065
  8. HYZAAR [Concomitant]
     Route: 065
  9. REVLIMID [Suspect]
     Dosage: 25 MILLIGRAM
     Route: 048
     Dates: start: 20070712, end: 20110101

REACTIONS (2)
  - RENAL FAILURE [None]
  - LABORATORY TEST ABNORMAL [None]
